FAERS Safety Report 25210093 (Version 1)
Quarter: 2025Q2

REPORT INFORMATION
  Report Type: Spontaneous
  Country: IN (occurrence: IN)
  Receive Date: 20250417
  Receipt Date: 20250417
  Transmission Date: 20250717
  Serious: Yes (Hospitalization, Other)
  Sender: AVYXA HOLDINGS
  Company Number: IN-AVYXA HOLDINGS, LLC-2025AVY000022

PATIENT
  Age: 61 Year
  Sex: Female

DRUGS (3)
  1. CYCLOPHOSPHAMIDE [Suspect]
     Active Substance: CYCLOPHOSPHAMIDE
     Indication: Sjogren^s syndrome
     Route: 065
  2. CYCLOPHOSPHAMIDE [Suspect]
     Active Substance: CYCLOPHOSPHAMIDE
     Indication: Vasculitic ulcer
  3. MESNA [Concomitant]
     Active Substance: MESNA
     Indication: Product used for unknown indication
     Route: 042

REACTIONS (4)
  - Enterocolitis haemorrhagic [Recovering/Resolving]
  - Hypovolaemia [Recovering/Resolving]
  - Acute kidney injury [Recovered/Resolved]
  - Product use in unapproved indication [Unknown]
